FAERS Safety Report 23748031 (Version 10)
Quarter: 2025Q2

REPORT INFORMATION
  Report Type: Spontaneous
  Country: GB (occurrence: GB)
  Receive Date: 20240416
  Receipt Date: 20250609
  Transmission Date: 20250716
  Serious: Yes (Other)
  Sender: MYLAN
  Company Number: GB-SANDOZ-SDZ2023GB048792

PATIENT
  Sex: Male

DRUGS (26)
  1. CYCLOSPORINE [Suspect]
     Active Substance: CYCLOSPORINE
     Indication: Psoriasis
  2. CYCLOSPORINE [Suspect]
     Active Substance: CYCLOSPORINE
     Dosage: 300 MILLIGRAM, MONTHLY (DOSE FORM:CAPSULE, SOFT)
  3. CYCLOSPORINE [Suspect]
     Active Substance: CYCLOSPORINE
  4. CYCLOSPORINE [Suspect]
     Active Substance: CYCLOSPORINE
     Dosage: 300 MILLIGRAM, MONTHLY (QMO, DOSE FORM: CAPSULE, SOFT)
  5. ACITRETIN [Suspect]
     Active Substance: ACITRETIN
     Indication: Psoriasis
     Dosage: 2 DOSAGE FORM, TID (TIME INTERVAL: 0.33333333 DAYS)
  6. ACETAMINOPHEN\CODEINE PHOSPHATE [Suspect]
     Active Substance: ACETAMINOPHEN\CODEINE PHOSPHATE
     Indication: Product used for unknown indication
     Dosage: 2 DOSAGE FORM, TID (30/500MG 2 TABLETS TDS) ;TIME INTERVAL:0.33333333 DAYS
  7. ACETAMINOPHEN\CODEINE PHOSPHATE [Suspect]
     Active Substance: ACETAMINOPHEN\CODEINE PHOSPHATE
     Dosage: 6 DOSAGE FORM, QD (1 TIME EVERY DAY)
  8. ACETAMINOPHEN\CODEINE PHOSPHATE [Suspect]
     Active Substance: ACETAMINOPHEN\CODEINE PHOSPHATE
     Dosage: 2 DOSAGE FORM ONCE DAILY
  9. BETAMETHASONE DIPROPIONATE\CALCIPOTRIENE MONOHYDRATE [Suspect]
     Active Substance: BETAMETHASONE DIPROPIONATE\CALCIPOTRIENE MONOHYDRATE
     Indication: Product used for unknown indication
  10. BETAMETHASONE DIPROPIONATE\CALCIPOTRIENE MONOHYDRATE [Suspect]
     Active Substance: BETAMETHASONE DIPROPIONATE\CALCIPOTRIENE MONOHYDRATE
  11. HYDROXYUREA [Suspect]
     Active Substance: HYDROXYUREA
     Indication: Psoriasis
  12. HUMIRA [Suspect]
     Active Substance: ADALIMUMAB
     Indication: Psoriasis
  13. METHOTREXATE [Suspect]
     Active Substance: METHOTREXATE
     Indication: Psoriasis
  14. STELARA [Suspect]
     Active Substance: USTEKINUMAB
     Indication: Psoriasis
  15. STELARA [Suspect]
     Active Substance: USTEKINUMAB
  16. SECUKINUMAB [Suspect]
     Active Substance: SECUKINUMAB
     Indication: Product used for unknown indication
     Dosage: 300 MILLIGRAM (300 MG MONTHLY)(300 MG, QMO) OROMUCOSAL SUSPENSION
  17. SECUKINUMAB [Suspect]
     Active Substance: SECUKINUMAB
  18. COSENTYX [Suspect]
     Active Substance: SECUKINUMAB
     Indication: Product used for unknown indication
     Dosage: 300 MILLIGRAM, MONTHLY QMO (300 MG MONTHLY)
  19. BETAMETHASONE DIPROPIONATE [Suspect]
     Active Substance: BETAMETHASONE DIPROPIONATE
     Indication: Product used for unknown indication
  20. ACETAMINOPHEN\CODEINE PHOSPHATE [Suspect]
     Active Substance: ACETAMINOPHEN\CODEINE PHOSPHATE
     Indication: Product used for unknown indication
     Dosage: 2 DOSAGE FORM, TID, 2 DOSAGE FORM, TID (30/500MG 2 TABLETS TDS)6 DOSAGE FORM, QD
  21. DAIVOBET [Suspect]
     Active Substance: BETAMETHASONE DIPROPIONATE\CALCIPOTRIENE
     Indication: Product used for unknown indication
  22. DAIVOBET [Suspect]
     Active Substance: BETAMETHASONE DIPROPIONATE\CALCIPOTRIENE
  23. DAIVOBET [Suspect]
     Active Substance: BETAMETHASONE DIPROPIONATE\CALCIPOTRIENE
  24. CODEINE [Suspect]
     Active Substance: CODEINE
     Indication: Product used for unknown indication
     Dosage: 6 DOSAGE FORM, QD
  25. CODEINE [Suspect]
     Active Substance: CODEINE
     Dosage: 2 DOSAGE FORM, QD
  26. CODEINE [Suspect]
     Active Substance: CODEINE
     Dosage: 2 DOSAGE FORM, TID (30/500MG 2 TABLETS TDS)

REACTIONS (9)
  - Chest pain [Unknown]
  - Skin hyperpigmentation [Unknown]
  - Wheezing [Unknown]
  - Burning sensation [Unknown]
  - Therapeutic product effect incomplete [Unknown]
  - Rash [Unknown]
  - Pruritus [Unknown]
  - Hypertension [Unknown]
  - Drug ineffective [Unknown]
